FAERS Safety Report 24405751 (Version 3)
Quarter: 2024Q4

REPORT INFORMATION
  Report Type: Report from Study
  Country: US (occurrence: US)
  Receive Date: 20241007
  Receipt Date: 20241101
  Transmission Date: 20250114
  Serious: Yes (Death, Other)
  Sender: GILEAD
  Company Number: US-GILEAD-2024-0690112

PATIENT
  Sex: Female

DRUGS (2)
  1. AMBRISENTAN [Suspect]
     Active Substance: AMBRISENTAN
     Indication: Pulmonary hypertension
     Dosage: 5 MG, QD
     Route: 065
     Dates: start: 20220323
  2. WARFARIN [Concomitant]
     Active Substance: WARFARIN

REACTIONS (2)
  - Death [Fatal]
  - Thinking abnormal [Unknown]
